FAERS Safety Report 8231138-9 (Version None)
Quarter: 2012Q1

REPORT INFORMATION
  Report Type: 
  Country: None (occurrence: None)
  Receive Date: 20120323
  Receipt Date: 20120319
  Transmission Date: 20120608
  Serious: Yes (Other)
  Sender: FDA-Public Use
  Company Number: US-PFIZER INC-2012071139

PATIENT
  Sex: Female

DRUGS (1)
  1. LYRICA [Suspect]
     Dosage: 200 MG, UNK

REACTIONS (5)
  - MIDDLE INSOMNIA [None]
  - DISORIENTATION [None]
  - HALLUCINATION [None]
  - EMOTIONAL DISORDER [None]
  - DEPRESSION [None]
